FAERS Safety Report 5664406-5 (Version None)
Quarter: 2008Q1

REPORT INFORMATION
  Report Type: 
  Country: None (occurrence: None)
  Receive Date: 20080314
  Receipt Date: 20080306
  Transmission Date: 20080703
  Serious: Yes (Hospitalization)
  Sender: FDA-Public Use
  Company Number: TR-ABBOTT-08P-161-0441268-00

PATIENT
  Age: 22 Year
  Sex: Male

DRUGS (1)
  1. VALPROATE SODIUM [Suspect]
     Indication: GRAND MAL CONVULSION

REACTIONS (6)
  - ABDOMINAL PAIN [None]
  - BLOOD OSMOLARITY DECREASED [None]
  - HYPONATRAEMIA [None]
  - INAPPROPRIATE ANTIDIURETIC HORMONE SECRETION [None]
  - URINE OSMOLARITY INCREASED [None]
  - VOMITING [None]
